FAERS Safety Report 16672347 (Version 1)
Quarter: 2019Q3

REPORT INFORMATION
  Report Type: Spontaneous
  Country: FR (occurrence: FR)
  Receive Date: 20190806
  Receipt Date: 20190806
  Transmission Date: 20191004
  Serious: Yes (Hospitalization, Other)
  Sender: FDA-Public Use
  Company Number: FR-AUROBINDO-AUR-APL-2019-045527

PATIENT

DRUGS (20)
  1. BURINEX [Suspect]
     Active Substance: BUMETANIDE
     Indication: HYPERNATRAEMIA
     Dosage: 2 MILLIGRAM, ONCE A DAY
     Route: 042
     Dates: start: 20190405
  2. INSULINE [Concomitant]
     Active Substance: INSULIN NOS
     Indication: DIABETES MELLITUS
     Dosage: UNK
     Route: 058
     Dates: start: 20190402
  3. LAMICTAL [Suspect]
     Active Substance: LAMOTRIGINE
     Indication: POISONING DELIBERATE
     Dosage: 6 DOSAGE FORM
     Route: 048
     Dates: start: 20190401, end: 20190401
  4. LASILIX [Suspect]
     Active Substance: FUROSEMIDE
     Indication: HYPERNATRAEMIA
     Dosage: 40 MILLIGRAM, ONCE A DAY
     Route: 042
     Dates: start: 20190403, end: 20190405
  5. THERALENE [Concomitant]
     Active Substance: TRIMEPRAZINE
     Indication: DEPRESSION
     Dosage: UNK
     Route: 048
     Dates: end: 20190331
  6. EUPANTOL [Concomitant]
     Active Substance: PANTOPRAZOLE SODIUM
     Indication: GASTRIC ULCER
     Dosage: UNK
     Route: 042
     Dates: start: 20190402
  7. XEROQUEL [Concomitant]
     Active Substance: QUETIAPINE FUMARATE
     Indication: DEPRESSION
     Dosage: UNK
     Route: 048
  8. FRAGMINE [Suspect]
     Active Substance: DALTEPARIN SODIUM
     Indication: THROMBOSIS PROPHYLAXIS
     Dosage: 1 DOSAGE FORM, ONCE A DAY
     Route: 058
     Dates: start: 20190402
  9. GENTAMICINE [Suspect]
     Active Substance: GENTAMICIN
     Indication: ANTIBIOTIC THERAPY
     Dosage: 400 MILLIGRAM, ONCE A DAY
     Route: 042
     Dates: start: 20190402, end: 20190405
  10. KETAMINE [Suspect]
     Active Substance: KETAMINE
     Indication: ANAESTHESIA
     Dosage: UNK
     Route: 041
     Dates: start: 20190401, end: 20190401
  11. CELOCURINE [Suspect]
     Active Substance: SUCCINYLCHOLINE
     Indication: ANAESTHESIA
     Dosage: UNK
     Route: 041
     Dates: start: 20190401, end: 20190401
  12. HYDROCORTISONE. [Suspect]
     Active Substance: HYDROCORTISONE
     Indication: PRODUCT USED FOR UNKNOWN INDICATION
     Dosage: UNK
     Route: 042
     Dates: start: 20190402
  13. CALCIPARINE [Concomitant]
     Active Substance: HEPARIN CALCIUM
     Indication: THROMBOSIS PROPHYLAXIS
     Dosage: UNK
     Route: 058
     Dates: start: 20190405, end: 20190412
  14. FLUOXETINE [Suspect]
     Active Substance: FLUOXETINE HYDROCHLORIDE
     Indication: POISONING DELIBERATE
     Dosage: 14 DOSAGE FORM
     Route: 048
     Dates: start: 20190401, end: 20190401
  15. HIDONAC [Suspect]
     Active Substance: ACETYLCYSTEINE
     Indication: POISONING
     Dosage: SELON PROTOCOLE RCP AVEC ADPATATION AU POIDS
     Route: 042
  16. NARCAN [Suspect]
     Active Substance: NALOXONE HYDROCHLORIDE
     Indication: PRODUCT USED FOR UNKNOWN INDICATION
     Dosage: 1 DOSAGE FORM
     Route: 042
     Dates: start: 20190401, end: 20190401
  17. AUGMENTIN [Suspect]
     Active Substance: AMOXICILLIN\CLAVULANATE POTASSIUM
     Indication: ANTIBIOTIC THERAPY
     Dosage: 2G/200MG TOUTES LES 12H
     Route: 042
     Dates: start: 20190401, end: 20190409
  18. THERALENE [Concomitant]
     Active Substance: TRIMEPRAZINE
     Indication: POISONING DELIBERATE
     Dosage: UNK
     Route: 048
     Dates: start: 20190401, end: 20190401
  19. EFFERALGAN [Suspect]
     Active Substance: ACETAMINOPHEN
     Indication: POISONING DELIBERATE
     Dosage: 27 DOSAGE FORM, 1 TOTAL
     Route: 048
     Dates: start: 20190401, end: 20190401
  20. MIDAZOLAM [Suspect]
     Active Substance: MIDAZOLAM HYDROCHLORIDE
     Indication: SEDATION
     Dosage: UNK
     Route: 042
     Dates: start: 20190402

REACTIONS (2)
  - Poisoning deliberate [Recovered/Resolved]
  - Thrombocytopenia [Recovered/Resolved]

NARRATIVE: CASE EVENT DATE: 20190401
